FAERS Safety Report 7638616-1 (Version None)
Quarter: 2011Q3

REPORT INFORMATION
  Report Type: 
  Country: None (occurrence: None)
  Receive Date: 20110726
  Receipt Date: 20110726
  Transmission Date: 20111222
  Serious: Yes (Hospitalization)
  Sender: FDA-Public Use
  Company Number: None

PATIENT
  Age: 70 Year
  Sex: Male
  Weight: 86.1834 kg

DRUGS (2)
  1. PROPOFOL [Suspect]
     Indication: ANAESTHESIA
     Dosage: 90MG IV
     Route: 042
  2. PROPOFOL [Suspect]
     Indication: SEDATION
     Dosage: 90MG IV
     Route: 042

REACTIONS (3)
  - COLD SWEAT [None]
  - BACK PAIN [None]
  - CHILLS [None]
